FAERS Safety Report 22191328 (Version 4)
Quarter: 2023Q2

REPORT INFORMATION
  Report Type: Spontaneous
  Country: CN (occurrence: None)
  Receive Date: 20230410
  Receipt Date: 20230522
  Transmission Date: 20230721
  Serious: Yes (Life-Threatening, Hospitalization, Other)
  Sender: FDA-Public Use
  Company Number: CN-ROCHE-3315587

PATIENT
  Age: 35 Year
  Sex: Female

DRUGS (7)
  1. TAMIFLU [Suspect]
     Active Substance: OSELTAMIVIR PHOSPHATE
     Indication: Influenza
     Route: 048
     Dates: start: 20230307, end: 20230307
  2. METHYLPREDNISOLONE [Suspect]
     Active Substance: METHYLPREDNISOLONE
     Indication: Stevens-Johnson syndrome
     Route: 041
     Dates: start: 20230319, end: 20230325
  3. METHYLPREDNISOLONE [Suspect]
     Active Substance: METHYLPREDNISOLONE
     Route: 041
     Dates: start: 20230326, end: 20230329
  4. METHYLPREDNISOLONE [Suspect]
     Active Substance: METHYLPREDNISOLONE
     Route: 048
     Dates: start: 20230326, end: 20230329
  5. CEFACLOR [Concomitant]
     Active Substance: CEFACLOR
     Route: 048
  6. EBASTINE [Concomitant]
     Active Substance: EBASTINE
     Route: 048
  7. REPAGLINIDE [Concomitant]
     Active Substance: REPAGLINIDE

REACTIONS (6)
  - Stevens-Johnson syndrome [Recovering/Resolving]
  - Erythema multiforme [Recovering/Resolving]
  - Sudden hearing loss [Recovering/Resolving]
  - Intentional product misuse [Unknown]
  - Blood glucose increased [Recovering/Resolving]
  - Insomnia [Not Recovered/Not Resolved]

NARRATIVE: CASE EVENT DATE: 20230316
